FAERS Safety Report 10880058 (Version 1)
Quarter: 2015Q1

REPORT INFORMATION
  Report Type: Spontaneous
  Country: FI (occurrence: FI)
  Receive Date: 20150302
  Receipt Date: 20150302
  Transmission Date: 20150721
  Serious: Yes (Other)
  Sender: FDA-Public Use
  Company Number: FI-GILEAD-2015-0138992

PATIENT
  Age: 43 Year
  Sex: Female

DRUGS (9)
  1. PANADOL FORTE [Concomitant]
     Dosage: UNK
     Route: 048
     Dates: start: 20140630, end: 20140716
  2. STREPTOMYCIN [Suspect]
     Active Substance: STREPTOMYCIN\STREPTOMYCIN SULFATE
     Indication: PRODUCT USED FOR UNKNOWN INDICATION
     Dosage: 500 MG, UNK
     Route: 030
     Dates: start: 20140630, end: 20140716
  3. ANSATIPIN [Concomitant]
     Dosage: 150 MG, Q1WK
     Route: 048
     Dates: start: 20140630, end: 20140716
  4. VITA-B6 [Concomitant]
     Dosage: 100 MG, UNK
     Route: 048
     Dates: start: 20140630, end: 20140716
  5. REYATAZ [Concomitant]
     Active Substance: ATAZANAVIR SULFATE
     Indication: HIV INFECTION
     Dosage: 300 MG, QD
     Route: 048
     Dates: start: 20131114, end: 20140907
  6. NORVIR [Concomitant]
     Active Substance: RITONAVIR
     Indication: HIV INFECTION
     Dosage: 100 MG, QD
     Route: 048
     Dates: start: 20131114
  7. ORIBUTOL [Concomitant]
     Dosage: 750 MG, QD
     Route: 048
     Dates: start: 20140630, end: 20140716
  8. TISAMID [Concomitant]
     Dosage: 1 G, QD
     Route: 048
     Dates: start: 20140630, end: 20140716
  9. TRUVADA [Suspect]
     Active Substance: EMTRICITABINE\TENOFOVIR DISOPROXIL FUMARATE
     Indication: HIV INFECTION
     Dosage: UNK
     Route: 048
     Dates: start: 20131114, end: 20140907

REACTIONS (13)
  - Back pain [Recovered/Resolved]
  - Neutropenia [Recovered/Resolved]
  - Renal tubular disorder [Recovered/Resolved]
  - Nausea [Recovered/Resolved]
  - Drug interaction [Unknown]
  - Renal injury [Unknown]
  - Haematuria [Unknown]
  - Pyrexia [Recovered/Resolved]
  - Lymph node tuberculosis [Unknown]
  - Pain [Unknown]
  - Myalgia [Recovered/Resolved]
  - Peripheral swelling [Unknown]
  - Malaise [Unknown]

NARRATIVE: CASE EVENT DATE: 20140704
